FAERS Safety Report 9645268 (Version 1)
Quarter: 2013Q4

REPORT INFORMATION
  Report Type: Spontaneous
  Country: JP (occurrence: JP)
  Receive Date: 20131025
  Receipt Date: 20131025
  Transmission Date: 20140711
  Serious: Yes (Hospitalization)
  Sender: FDA-Public Use
  Company Number: PHHY2013JP120674

PATIENT
  Sex: 0

DRUGS (1)
  1. CO-DIOVAN [Suspect]
     Dosage: 1 DF, DAILY
     Route: 048

REACTIONS (1)
  - Neoplasm malignant [Unknown]
